FAERS Safety Report 5215736-2 (Version None)
Quarter: 2007Q1

REPORT INFORMATION
  Report Type: 
  Country: None (occurrence: None)
  Receive Date: 20070123
  Receipt Date: 20070111
  Transmission Date: 20070707
  Serious: Yes (Hospitalization, Other)
  Sender: FDA-Public Use
  Company Number: FR-ELI_LILLY_AND_COMPANY-FR200701002893

PATIENT
  Age: 81 Year
  Sex: Female

DRUGS (8)
  1. FORTEO [Suspect]
     Indication: OSTEOPOROSIS
     Dosage: 20 UG, DAILY (1/D)
     Route: 058
     Dates: start: 20050608, end: 20061128
  2. ASPIRIN [Concomitant]
     Dosage: 1 D/F, EACH MORNING
  3. CORDARONE [Concomitant]
     Dosage: 1 D/F, EACH MORNING
  4. HEMIGOXINE NATIVELLE [Concomitant]
     Dosage: 1 D/F, EACH MORNING
  5. ALDACTONE [Concomitant]
     Dosage: 1 D/F, EACH MORNING
  6. CACIT D3 [Concomitant]
  7. DIAMOX [Concomitant]
     Dosage: 0.5 D/F, 2/D
  8. DAFALGAN [Concomitant]

REACTIONS (7)
  - GENERAL PHYSICAL HEALTH DETERIORATION [None]
  - MYCOSIS FUNGOIDES [None]
  - PNEUMONIA [None]
  - PRODUCTIVE COUGH [None]
  - URINARY TRACT INFECTION BACTERIAL [None]
  - VULVOVAGINAL MYCOTIC INFECTION [None]
  - WEIGHT DECREASED [None]
